FAERS Safety Report 7286954-7 (Version None)
Quarter: 2011Q1

REPORT INFORMATION
  Report Type: 
  Country: None (occurrence: None)
  Receive Date: 20110211
  Receipt Date: 20110127
  Transmission Date: 20110831
  Serious: No
  Sender: FDA-Public Use
  Company Number: US-BIOGENIDEC-2010BI009276

PATIENT
  Age: 48 Year
  Sex: Female

DRUGS (3)
  1. TYSABRI [Suspect]
     Route: 042
     Dates: start: 20090518
  2. AVONEX [Concomitant]
     Indication: MULTIPLE SCLEROSIS
     Route: 030
  3. TYSABRI [Suspect]
     Indication: MULTIPLE SCLEROSIS
     Route: 042
     Dates: start: 20070328, end: 20080130

REACTIONS (10)
  - HEADACHE [None]
  - ANKLE FRACTURE [None]
  - INFLUENZA [None]
  - VERTIGO [None]
  - FALL [None]
  - MEMORY IMPAIRMENT [None]
  - BRONCHITIS [None]
  - PAIN IN EXTREMITY [None]
  - HYPOAESTHESIA [None]
  - NAUSEA [None]
